FAERS Safety Report 13689648 (Version 1)
Quarter: 2017Q2

REPORT INFORMATION
  Report Type: Report from Study
  Country: TW (occurrence: TW)
  Receive Date: 20170626
  Receipt Date: 20170626
  Transmission Date: 20170830
  Serious: Yes (Death, Other)
  Sender: FDA-Public Use
  Company Number: TW-ROCHE-1952811

PATIENT
  Age: 74 Year
  Sex: Female

DRUGS (1)
  1. ALTEPLASE [Suspect]
     Active Substance: ALTEPLASE
     Indication: ISCHAEMIC STROKE
     Dosage: GIVEN WITHIN 100 MINUTES ONSET OF STROKE
     Route: 042

REACTIONS (2)
  - Infarction [Fatal]
  - Cerebral haemorrhage [Unknown]
